APPROVED DRUG PRODUCT: ZOLMITRIPTAN
Active Ingredient: ZOLMITRIPTAN
Strength: 5MG
Dosage Form/Route: TABLET;ORAL
Application: A204041 | Product #002 | TE Code: AB
Applicant: AJANTA PHARMA LTD
Approved: May 20, 2016 | RLD: No | RS: Yes | Type: RX